FAERS Safety Report 10974737 (Version 1)
Quarter: 2015Q1

REPORT INFORMATION
  Report Type: Spontaneous
  Country: US (occurrence: None)
  Receive Date: 20150226
  Receipt Date: 20150226
  Transmission Date: 20150721
  Serious: Yes (Hospitalization)
  Sender: FDA-Public Use
  Company Number: TPA2009A01537

PATIENT
  Age: 59 Year
  Sex: Male
  Weight: 81.81 kg

DRUGS (5)
  1. COLCHICINE (COLCHICINE) [Concomitant]
     Active Substance: COLCHICINE
  2. ULORIC [Suspect]
     Active Substance: FEBUXOSTAT
     Indication: GOUT
     Dosage: 1 IN 1 D
     Route: 048
     Dates: start: 200905, end: 200906
  3. CYCLOSPORINE (CICLOSPORIN) [Concomitant]
     Active Substance: CYCLOSPORINE
  4. ALLOPURINOL (ALLOPURINOL) [Concomitant]
     Active Substance: ALLOPURINOL
  5. PREDNISONE (PREDNISONE) [Concomitant]
     Active Substance: PREDNISONE

REACTIONS (4)
  - Pyrexia [None]
  - Gout [None]
  - Muscular weakness [None]
  - Pancytopenia [None]

NARRATIVE: CASE EVENT DATE: 20090601
